FAERS Safety Report 6207153-3 (Version None)
Quarter: 2009Q2

REPORT INFORMATION
  Report Type: 
  Country: None (occurrence: None)
  Receive Date: 20090528
  Receipt Date: 20090521
  Transmission Date: 20091009
  Serious: Yes (Other)
  Sender: FDA-Public Use
  Company Number: JP-B.I. PHARMACEUTICALS,INC./RIDGEFIELD-2009-BP-06311NB

PATIENT
  Age: 70 Year
  Sex: Female

DRUGS (2)
  1. MOBIC [Suspect]
     Route: 048
     Dates: start: 20080401, end: 20080501
  2. UNSPECIFIED DRUG [Suspect]
     Route: 048
     Dates: start: 20080401, end: 20080501

REACTIONS (1)
  - LIVER DISORDER [None]
